FAERS Safety Report 5256623-3 (Version None)
Quarter: 2007Q1

REPORT INFORMATION
  Report Type: 
  Country: None (occurrence: None)
  Receive Date: 20070306
  Receipt Date: 20070125
  Transmission Date: 20070707
  Serious: Yes (Other)
  Sender: FDA-Public Use
  Company Number: US-SANOFI-SYNTHELABO-A03200701182

PATIENT
  Sex: Male

DRUGS (1)
  1. PLAVIX [Suspect]
     Indication: STENT PLACEMENT
     Dosage: UNK
     Route: 048

REACTIONS (8)
  - CONFUSIONAL STATE [None]
  - DELUSION [None]
  - DYSGEUSIA [None]
  - HOSTILITY [None]
  - PERSONALITY CHANGE [None]
  - RESTLESSNESS [None]
  - SLEEP WALKING [None]
  - WEIGHT DECREASED [None]
